FAERS Safety Report 6748627-6 (Version None)
Quarter: 2010Q2

REPORT INFORMATION
  Report Type: 
  Country: None (occurrence: None)
  Receive Date: 20100601
  Receipt Date: 20100519
  Transmission Date: 20101027
  Serious: Yes (Other)
  Sender: FDA-Public Use
  Company Number: US-BAYER-201023561NA

PATIENT
  Age: 79 Year
  Sex: Female

DRUGS (3)
  1. NEXAVAR [Suspect]
     Indication: HEPATIC NEOPLASM MALIGNANT
     Dosage: TOTAL DAILY DOSE: 400 MG  UNIT DOSE: 200 MG
     Route: 048
     Dates: start: 20100415
  2. LEVALOR [Concomitant]
  3. REGULAR INSULIN [Concomitant]
     Dosage: REGULAR INSULIN SLIDING SCALE-AMOUNT BASED ON BLOOD SUGAR

REACTIONS (3)
  - BLOOD GLUCOSE INCREASED [None]
  - NERVOUSNESS [None]
  - PLATELET COUNT DECREASED [None]
